FAERS Safety Report 7001783-7 (Version None)
Quarter: 2010Q3

REPORT INFORMATION
  Report Type: 
  Country: None (occurrence: None)
  Receive Date: 20100920
  Receipt Date: 20071004
  Transmission Date: 20110219
  Serious: Yes (Other)
  Sender: FDA-Public Use
  Company Number: US-ASTRAZENECA-2006UW22661

PATIENT
  Age: 30 Year
  Sex: Female
  Weight: 137.4 kg

DRUGS (22)
  1. SEROQUEL [Suspect]
     Indication: DEPRESSION
     Route: 048
     Dates: start: 20030101, end: 20040101
  2. SEROQUEL [Suspect]
     Indication: BIPOLAR DISORDER
     Route: 048
     Dates: start: 20030101, end: 20040101
  3. SEROQUEL [Suspect]
     Dosage: 25-150 MG DAILY
     Route: 048
     Dates: start: 20030327
  4. SEROQUEL [Suspect]
     Dosage: 25-150 MG DAILY
     Route: 048
     Dates: start: 20030327
  5. CLOZARIL [Concomitant]
     Dates: start: 20040101, end: 20060101
  6. RISPERDAL [Concomitant]
     Dates: start: 20030101, end: 20050101
  7. RISPERDAL [Concomitant]
     Route: 048
     Dates: start: 20030728
  8. TYLENOL [Concomitant]
     Dates: start: 20030728
  9. CLONAZEPAM [Concomitant]
     Route: 048
     Dates: start: 20030728
  10. CELEXA [Concomitant]
     Route: 048
     Dates: start: 20030728
  11. ALBUTEROL [Concomitant]
  12. LISINOPRIL [Concomitant]
     Dosage: 10-20 MG DAILY
     Route: 048
     Dates: start: 20050614
  13. IBUPROFEN [Concomitant]
     Route: 048
     Dates: start: 20030728
  14. SOMA [Concomitant]
     Route: 048
     Dates: start: 20030728
  15. VIOXX [Concomitant]
     Indication: PAIN
     Route: 048
  16. FLOVENT [Concomitant]
     Dosage: 220 MCG 2 PUFFS TWO TIMES A DAY
     Route: 048
     Dates: start: 20070327
  17. FLEXERIL [Concomitant]
     Dates: start: 20070327
  18. ZOLOFT [Concomitant]
     Dosage: 50 MG AS DIRECTED
     Dates: start: 20070227
  19. HYDROXYZINE HCL [Concomitant]
     Route: 048
     Dates: start: 20070227
  20. XOPENEX HFA [Concomitant]
     Dosage: 45 MCG 1 PUFF EVERY 6 HOURS
     Route: 048
     Dates: start: 20070208
  21. MICRONASE [Concomitant]
     Route: 048
     Dates: start: 20070405
  22. FELDENE [Concomitant]
     Route: 048

REACTIONS (1)
  - DIABETES MELLITUS [None]
